FAERS Safety Report 6797213-0 (Version None)
Quarter: 2010Q2

REPORT INFORMATION
  Report Type: 
  Country: None (occurrence: None)
  Receive Date: 20100623
  Receipt Date: 20100611
  Transmission Date: 20101027
  Serious: Yes (Hospitalization)
  Sender: FDA-Public Use
  Company Number: DSU-2010-02706

PATIENT
  Sex: Female

DRUGS (1)
  1. BENICAR [Suspect]
     Indication: DRUG USE FOR UNKNOWN INDICATION
     Dosage: 20 MG (20 MG, QD), PER ORAL; 20 MG (20 MG, QD), PER ORAL
     Route: 048

REACTIONS (3)
  - CHOLECYSTECTOMY [None]
  - NAUSEA [None]
  - VOMITING [None]
